FAERS Safety Report 12632425 (Version 4)
Quarter: 2018Q1

REPORT INFORMATION
  Report Type: Spontaneous
  Country: US (occurrence: US)
  Receive Date: 20160808
  Receipt Date: 20180320
  Transmission Date: 20180508
  Serious: No
  Sender: FDA-Public Use
  Company Number: US-BEH-2016062818

PATIENT
  Sex: Female
  Weight: 89.8 kg

DRUGS (34)
  1. HIZENTRA [Suspect]
     Active Substance: HUMAN IMMUNOGLOBULIN G
     Indication: IMMUNODEFICIENCY COMMON VARIABLE
     Dosage: UNK
     Route: 058
  2. HIZENTRA [Suspect]
     Active Substance: HUMAN IMMUNOGLOBULIN G
     Dosage: UNK
     Route: 058
  3. HIZENTRA [Suspect]
     Active Substance: HUMAN IMMUNOGLOBULIN G
     Dosage: 13 G, QW
     Route: 058
  4. TRIAZOLAM. [Concomitant]
     Active Substance: TRIAZOLAM
  5. PILOCARPINE. [Concomitant]
     Active Substance: PILOCARPINE
  6. HIZENTRA [Suspect]
     Active Substance: HUMAN IMMUNOGLOBULIN G
     Dosage: UNK
     Route: 058
  7. ACETAMINOPHEN. [Concomitant]
     Active Substance: ACETAMINOPHEN
  8. ALBUTEROL                          /00139501/ [Concomitant]
     Active Substance: ALBUTEROL
  9. FERROUS SULFATE. [Concomitant]
     Active Substance: FERROUS SULFATE
  10. TRAZODONE [Concomitant]
     Active Substance: TRAZODONE HYDROCHLORIDE
  11. LEVAQUIN [Concomitant]
     Active Substance: LEVOFLOXACIN
  12. UMECLIDINIUM BROMIDE [Concomitant]
     Active Substance: UMECLIDINIUM BROMIDE
  13. ALPHA LIPOIC ACID [Concomitant]
     Active Substance: .ALPHA.-LIPOIC ACID
  14. PRAMIPEXOLE. [Concomitant]
     Active Substance: PRAMIPEXOLE
  15. EPIPEN [Concomitant]
     Active Substance: EPINEPHRINE
  16. HIZENTRA [Suspect]
     Active Substance: HUMAN IMMUNOGLOBULIN G
     Dosage: UNK
     Route: 058
  17. DIAZEPAM. [Concomitant]
     Active Substance: DIAZEPAM
  18. MULTIPLE VITAMINS [Concomitant]
     Active Substance: VITAMINS
  19. PROBIOTIC + ACIDOPHILUS [Concomitant]
  20. EPINEPHRINE. [Concomitant]
     Active Substance: EPINEPHRINE
  21. ASPIRIN EC [Concomitant]
     Active Substance: ASPIRIN
  22. DIPHENHYDRAMINE. [Concomitant]
     Active Substance: DIPHENHYDRAMINE
  23. AMITIZA [Concomitant]
     Active Substance: LUBIPROSTONE
  24. VENLAFAXINE [Concomitant]
     Active Substance: VENLAFAXINE HYDROCHLORIDE
  25. ESCITALOPRAM [Concomitant]
     Active Substance: ESCITALOPRAM OXALATE
  26. LEVOTHYROXINE. [Concomitant]
     Active Substance: LEVOTHYROXINE
  27. MIRALAX [Concomitant]
     Active Substance: POLYETHYLENE GLYCOL 3350
  28. IPRATROPIUM [Concomitant]
     Active Substance: IPRATROPIUM
  29. HIZENTRA [Suspect]
     Active Substance: HUMAN IMMUNOGLOBULIN G
     Dosage: UNK
     Route: 058
  30. ADVAIR HFA [Concomitant]
     Active Substance: FLUTICASONE PROPIONATE\SALMETEROL XINAFOATE
  31. ATORVASTATIN [Concomitant]
     Active Substance: ATORVASTATIN
  32. PROAIR HFA [Concomitant]
     Active Substance: ALBUTEROL SULFATE
  33. GABAPENTIN. [Concomitant]
     Active Substance: GABAPENTIN
  34. FUROSEMIDE. [Concomitant]
     Active Substance: FUROSEMIDE

REACTIONS (3)
  - Nasal congestion [Unknown]
  - Pyrexia [Unknown]
  - Chills [Unknown]
